FAERS Safety Report 6231878-7 (Version None)
Quarter: 2009Q2

REPORT INFORMATION
  Report Type: 
  Country: None (occurrence: None)
  Receive Date: 20090612
  Receipt Date: 20090605
  Transmission Date: 20091009
  Serious: Yes (Death)
  Sender: FDA-Public Use
  Company Number: 2009JP003552

PATIENT
  Age: 30 Year
  Sex: Male

DRUGS (2)
  1. TACROLIMUS [Suspect]
     Indication: LIVER TRANSPLANT
  2. PREDNISOLONE [Suspect]
     Indication: LIVER TRANSPLANT

REACTIONS (1)
  - COLORECTAL CANCER [None]
